FAERS Safety Report 7363629-7 (Version None)
Quarter: 2011Q1

REPORT INFORMATION
  Report Type: 
  Country: None (occurrence: None)
  Receive Date: 20110321
  Receipt Date: 20110316
  Transmission Date: 20110831
  Serious: Yes (Other)
  Sender: FDA-Public Use
  Company Number: DK-PFIZER INC-2011058490

PATIENT
  Age: 67 Year
  Sex: Female
  Weight: 89 kg

DRUGS (2)
  1. CHAMPIX [Suspect]
     Indication: SMOKING CESSATION THERAPY
     Dosage: STRENGTH: 0.5 MG THEREAFTER 1 MG. DOSIS: 1 TABLET DAILY
     Route: 048
     Dates: start: 20100902, end: 20100927
  2. CRESTOR [Concomitant]
     Indication: HYPERTENSION
     Dosage: STRENGTH 20 MG.
     Route: 048
     Dates: start: 20081013

REACTIONS (5)
  - TONGUE DISORDER [None]
  - SPEECH DISORDER [None]
  - DYSGRAPHIA [None]
  - PRURITUS [None]
  - RHINORRHOEA [None]
